FAERS Safety Report 10670507 (Version 1)
Quarter: 2014Q4

REPORT INFORMATION
  Report Type: Spontaneous
  Country: PT (occurrence: None)
  Receive Date: 20141219
  Receipt Date: 20141219
  Transmission Date: 20150529
  Serious: Yes (Death, Life-Threatening)
  Sender: FDA-Public Use
  Company Number: FK201406225

PATIENT
  Age: 66 Year
  Sex: Male

DRUGS (3)
  1. VANCOMYCIN [Suspect]
     Active Substance: VANCOMYCIN
     Indication: STAPHYLOCOCCAL BACTERAEMIA
  2. DOXYCYCLINE. [Concomitant]
     Active Substance: DOXYCYCLINE
  3. RIFAMPICIN (RIFAMPICIN) [Concomitant]
     Active Substance: RIFAMPIN

REACTIONS (2)
  - Sudden death [None]
  - Drug ineffective [None]
